FAERS Safety Report 5082581-0 (Version None)
Quarter: 2006Q3

REPORT INFORMATION
  Report Type: 
  Country: None (occurrence: None)
  Receive Date: 20060814
  Receipt Date: 20060726
  Transmission Date: 20061208
  Serious: Yes (Hospitalization)
  Sender: FDA-Public Use
  Company Number: 2006S1000099

PATIENT
  Age: 79 Year
  Sex: Male

DRUGS (7)
  1. CUBICIN [Suspect]
     Indication: ENDOCARDITIS ENTEROCOCCAL
     Dosage: 500 MG;Q24H;IV
     Route: 042
  2. ACID SUPPRESSOR [Concomitant]
  3. ANTIDEPRESSANT [Concomitant]
  4. ENLARGED PROSTATE MEDICATION [Concomitant]
  5. TYLENOL [Concomitant]
  6. GLUCOSAMINE [Concomitant]
  7. VANCOMYCIN [Concomitant]

REACTIONS (8)
  - ATELECTASIS [None]
  - EOSINOPHILIA [None]
  - INTERSTITIAL LUNG DISEASE [None]
  - LOBAR PNEUMONIA [None]
  - LYMPHADENOPATHY [None]
  - NIGHT SWEATS [None]
  - PNEUMONITIS [None]
  - PULMONARY EMBOLISM [None]
